FAERS Safety Report 5262920-8 (Version None)
Quarter: 2007Q1

REPORT INFORMATION
  Report Type: 
  Country: None (occurrence: None)
  Receive Date: 20070312
  Receipt Date: 20070228
  Transmission Date: 20070707
  Serious: No
  Sender: FDA-Public Use
  Company Number: 2006UW10175

PATIENT
  Sex: Male
  Weight: 31.4 kg

DRUGS (5)
  1. SEROQUEL [Suspect]
     Indication: ATTENTION DEFICIT/HYPERACTIVITY DISORDER
     Route: 048
  2. SEROQUEL [Suspect]
     Indication: BIPOLAR DISORDER
     Route: 048
  3. SEROQUEL [Suspect]
     Indication: OBSESSIVE-COMPULSIVE DISORDER
     Route: 048
  4. ZYPREXA [Concomitant]
     Dosage: 5-10 MG
  5. ABILIFY [Concomitant]
     Dosage: 2-5 MG

REACTIONS (1)
  - DIABETES MELLITUS [None]
